FAERS Safety Report 5218121-2 (Version None)
Quarter: 2007Q1

REPORT INFORMATION
  Report Type: 
  Country: None (occurrence: None)
  Receive Date: 20070124
  Receipt Date: 20070117
  Transmission Date: 20070707
  Serious: Yes (Hospitalization)
  Sender: FDA-Public Use
  Company Number: JP-MERCK-0701USA01581

PATIENT
  Age: 75 Year
  Sex: Female
  Weight: 57 kg

DRUGS (3)
  1. HYDRODIURIL [Suspect]
     Indication: HYPERTENSION
     Route: 048
     Dates: start: 20060829, end: 20061024
  2. ADALAT [Concomitant]
     Indication: HYPERTENSION
     Route: 065
     Dates: start: 19980727, end: 20060828
  3. ADALAT [Concomitant]
     Route: 065
     Dates: start: 20060829

REACTIONS (2)
  - ANAEMIA [None]
  - THROMBOCYTOPENIC PURPURA [None]
